FAERS Safety Report 9633349 (Version 1)
Quarter: 2013Q4

REPORT INFORMATION
  Report Type: Spontaneous
  Country: US (occurrence: None)
  Receive Date: 20131018
  Receipt Date: 20131018
  Transmission Date: 20140711
  Serious: Yes (Other)
  Sender: FDA-Public Use
  Company Number: None

PATIENT
  Age: 42 Year
  Sex: Male
  Weight: 86.18 kg

DRUGS (7)
  1. XARELTO [Suspect]
     Indication: PULMONARY EMBOLISM
     Route: 048
     Dates: start: 20131005
  2. WHEY PROTEIN ENRICHED IN CYSTINE BOVINE [Concomitant]
  3. ECHINACHEA [Concomitant]
  4. ADVIL [Concomitant]
  5. ZYRTEC D [Concomitant]
  6. NEPRINOL [Concomitant]
  7. MULTI VITAMIN [Concomitant]

REACTIONS (2)
  - Pruritus [None]
  - Rash erythematous [None]
